FAERS Safety Report 9669807 (Version 8)
Quarter: 2015Q1

REPORT INFORMATION
  Report Type: Spontaneous
  Country: US (occurrence: US)
  Receive Date: 20131105
  Receipt Date: 20150316
  Transmission Date: 20150721
  Serious: Yes (Hospitalization, Other)
  Sender: FDA-Public Use
  Company Number: US-MERCK-1310USA014379

PATIENT
  Sex: Female
  Weight: 84.81 kg

DRUGS (3)
  1. ALENDRONATE SODIUM. [Suspect]
     Active Substance: ALENDRONATE SODIUM
     Indication: OSTEOPOROSIS
     Dosage: 70 MG, QW
     Route: 048
     Dates: start: 20080215, end: 2010
  2. FOSAMAX [Suspect]
     Active Substance: ALENDRONATE SODIUM
     Dosage: UNK
     Route: 048
     Dates: end: 2010
  3. FOSAMAX [Suspect]
     Active Substance: ALENDRONATE SODIUM
     Indication: OSTEOPOROSIS
     Dosage: 70 MG, QW
     Route: 048
     Dates: start: 200511, end: 2010

REACTIONS (20)
  - Femur fracture [Recovered/Resolved]
  - Knee operation [Unknown]
  - Osteopenia [Unknown]
  - Spinal osteoarthritis [Unknown]
  - Intramedullary rod insertion [Unknown]
  - Culture urine positive [Unknown]
  - Hypercholesterolaemia [Unknown]
  - Neuroma [Unknown]
  - White blood cell count decreased [Unknown]
  - Bursitis [Unknown]
  - Parathyroidectomy [Unknown]
  - Neurectomy [Unknown]
  - Hepatitis [Unknown]
  - Body height decreased [Unknown]
  - Synovial cyst [Unknown]
  - Hepatic function abnormal [Unknown]
  - Osteoarthritis [Unknown]
  - Osteoarthritis [Unknown]
  - Hypertension [Unknown]
  - Hyperparathyroidism [Unknown]

NARRATIVE: CASE EVENT DATE: 200103
